FAERS Safety Report 7637174-5 (Version None)
Quarter: 2011Q3

REPORT INFORMATION
  Report Type: 
  Country: None (occurrence: None)
  Receive Date: 20110726
  Receipt Date: 20110712
  Transmission Date: 20111222
  Serious: Yes (Other)
  Sender: FDA-Public Use
  Company Number: PHHY2011KR62055

PATIENT

DRUGS (3)
  1. CARBAMAZEPINE [Suspect]
     Dosage: 10 TO 20 TABLETS
  2. ZOLPIDEM [Concomitant]
     Dosage: 10 MG, UNK
  3. DIAZEPAM [Concomitant]
     Dosage: UNK UKN, UNK

REACTIONS (3)
  - GASTRITIS [None]
  - COMA [None]
  - DIZZINESS [None]
